FAERS Safety Report 24962257 (Version 4)
Quarter: 2025Q4

REPORT INFORMATION
  Report Type: Report from Study
  Country: US (occurrence: US)
  Receive Date: 20250212
  Receipt Date: 20251217
  Transmission Date: 20260117
  Serious: Yes (Other)
  Sender: PFIZER
  Company Number: US-PFIZER INC-202500031945

PATIENT
  Age: 61 Year
  Sex: Female

DRUGS (4)
  1. IBRANCE [Suspect]
     Active Substance: PALBOCICLIB
     Indication: Breast cancer female
     Dosage: 125 MG DAILY ON DAYS 1 THROUGH 21, EVERY 28 DAYS
     Route: 048
  2. IBRANCE [Suspect]
     Active Substance: PALBOCICLIB
     Dosage: 100 MG, CYCLIC (TAKE ONE BY MOUTH ON DAYS #1-21 EVERY 28 DAYS AND REPEAT)
     Route: 048
  3. IBRANCE [Suspect]
     Active Substance: PALBOCICLIB
     Dosage: 1 BY MOUTH DAILY ON DAYS # 1-21 EVERY 28 DAYS
     Route: 048
  4. CETIRIZINE [Concomitant]
     Active Substance: CETIRIZINE HYDROCHLORIDE
     Indication: Hypersensitivity
     Dosage: UNK

REACTIONS (6)
  - Neutropenia [Not Recovered/Not Resolved]
  - Influenza [Unknown]
  - Wheezing [Unknown]
  - Cough [Unknown]
  - Dysphonia [Unknown]
  - Hypotension [Unknown]
